FAERS Safety Report 9934829 (Version 3)
Quarter: 2014Q1

REPORT INFORMATION
  Report Type: Spontaneous
  Country: DE (occurrence: DE)
  Receive Date: 20140228
  Receipt Date: 20140318
  Transmission Date: 20141002
  Serious: Yes (Other)
  Sender: FDA-Public Use
  Company Number: DE-GLAXOSMITHKLINE-D0083015A

PATIENT
  Age: 25 Year
  Sex: Female
  Weight: 65 kg

DRUGS (4)
  1. FRAXIPARINE [Suspect]
     Dosage: 3ML PER DAY
     Route: 058
     Dates: start: 20140225
  2. CEFUROXIME AXETIL [Suspect]
     Dosage: 6000MG PER DAY
     Route: 048
     Dates: start: 20140225
  3. IBUFLAM [Suspect]
     Dosage: 12000MG PER DAY
     Route: 048
     Dates: start: 20140225
  4. DOLORMIN [Suspect]
     Dosage: 4TAB PER DAY
     Route: 048
     Dates: start: 20140225

REACTIONS (3)
  - Suicide attempt [Unknown]
  - Foot fracture [Recovered/Resolved]
  - Intentional overdose [Unknown]
